FAERS Safety Report 19794738 (Version 14)
Quarter: 2025Q3

REPORT INFORMATION
  Report Type: Report from Study
  Country: AU (occurrence: AU)
  Receive Date: 20210906
  Receipt Date: 20250905
  Transmission Date: 20251020
  Serious: Yes (Life-Threatening, Hospitalization, Other)
  Sender: TAKEDA
  Company Number: AU-TAKEDA-2021TUS052947

PATIENT
  Age: 28 Year
  Sex: Male
  Weight: 63 kg

DRUGS (14)
  1. TEDUGLUTIDE [Suspect]
     Active Substance: TEDUGLUTIDE
     Indication: Short-bowel syndrome
  2. TEDUGLUTIDE [Suspect]
     Active Substance: TEDUGLUTIDE
     Indication: Gastrointestinal disorder
     Dosage: 0.05 MILLIGRAM/KILOGRAM, QD
     Dates: start: 20210411
  3. TEDUGLUTIDE [Suspect]
     Active Substance: TEDUGLUTIDE
     Dosage: 0.32 MILLILITER, QD
     Dates: start: 20210419
  4. TEDUGLUTIDE [Suspect]
     Active Substance: TEDUGLUTIDE
     Dosage: 0.28 MILLILITER, QD
     Dates: end: 20220913
  5. TEDUGLUTIDE [Suspect]
     Active Substance: TEDUGLUTIDE
     Dosage: 0.28 MILLILITER, QD
     Dates: start: 20230224
  6. TEDUGLUTIDE [Suspect]
     Active Substance: TEDUGLUTIDE
     Dosage: 0.05 MILLIGRAM/KILOGRAM, QD
  7. VITAMIN D [Concomitant]
     Active Substance: VITAMIN D NOS
     Dosage: 1 DOSAGE FORM, QD
  8. VITAMIN D [Concomitant]
     Active Substance: VITAMIN D NOS
     Dosage: 1 DOSAGE FORM, TID
  9. BACLOFEN [Concomitant]
     Active Substance: BACLOFEN
     Dosage: 1 DOSAGE FORM, BID
  10. PANTOPRAZOLE [Concomitant]
     Active Substance: PANTOPRAZOLE
     Dosage: 1 DOSAGE FORM, QD
  11. ESOMEPRAZOLE [Concomitant]
     Active Substance: ESOMEPRAZOLE
     Dosage: 1 DOSAGE FORM, QD
  12. LOPERAMIDE [Concomitant]
     Active Substance: LOPERAMIDE
     Dosage: 2 DOSAGE FORM, TID
  13. CODEINE [Concomitant]
     Active Substance: CODEINE
     Dosage: 1 DOSAGE FORM, BID
  14. RIVAROXABAN [Concomitant]
     Active Substance: RIVAROXABAN
     Dosage: 1 DOSAGE FORM, QD

REACTIONS (19)
  - Tachycardia [Recovering/Resolving]
  - Respiratory rate increased [Recovering/Resolving]
  - Decubitus ulcer [Recovering/Resolving]
  - Abdominal pain [Recovering/Resolving]
  - Cholecystitis [Recovered/Resolved]
  - Gastrointestinal stoma output abnormal [Unknown]
  - Weight loss poor [Unknown]
  - Pneumonia aspiration [Recovered/Resolved]
  - Postoperative ileus [Recovered/Resolved]
  - Biliary sepsis [Recovered/Resolved]
  - Respiratory failure [Recovering/Resolving]
  - Gastrointestinal stoma output decreased [Unknown]
  - Nephrolithiasis [Unknown]
  - Vomiting [Unknown]
  - Large intestinal stenosis [Unknown]
  - Post procedural sepsis [Unknown]
  - Gastric mucosal lesion [Unknown]
  - Weight increased [Unknown]
  - Abdominal distension [Unknown]

NARRATIVE: CASE EVENT DATE: 20220614
